FAERS Safety Report 5216488-2 (Version None)
Quarter: 2006Q4

REPORT INFORMATION
  Report Type: 
  Country: None (occurrence: None)
  Receive Date: 20061129
  Receipt Date: 20040615
  Transmission Date: 20070319
  Serious: No
  Sender: FDA-Public Use
  Company Number: 2004UW10342

PATIENT
  Age: 90 Year
  Sex: Female
  Weight: 58.514 kg

DRUGS (10)
  1. FASLODEX [Suspect]
     Indication: BREAST CANCER
     Dosage: 250 MG/5 ML
  2. NEXIUM [Concomitant]
  3. DIOVAN [Concomitant]
  4. ASPIRIN [Concomitant]
  5. COREG [Concomitant]
  6. FEOSOL [Concomitant]
  7. TYLENOL EXTRA-STRENGTH [Concomitant]
  8. VIOXX [Concomitant]
  9. COMBIVENT [Concomitant]
  10. ARIMIDEX [Concomitant]

REACTIONS (2)
  - PHARYNGOLARYNGEAL PAIN [None]
  - RASH [None]
